FAERS Safety Report 7757860-6 (Version None)
Quarter: 2011Q3

REPORT INFORMATION
  Report Type: 
  Country: None (occurrence: None)
  Receive Date: 20110918
  Receipt Date: 20110906
  Transmission Date: 20111222
  Serious: Yes (Death)
  Sender: FDA-Public Use
  Company Number: US-BRISTOL-MYERS SQUIBB COMPANY-16061160

PATIENT

DRUGS (7)
  1. CARMUSTINE [Suspect]
     Indication: LEUKAEMIA
     Route: 042
  2. CYCLOPHOSPHAMIDE [Suspect]
     Indication: LEUKAEMIA
     Dosage: 1DF:1.5G/SQ.M PER DAY FOR 3-4 DAYS
     Route: 042
  3. KETOCONAZOLE [Concomitant]
  4. AMPHOTERICIN B [Concomitant]
     Route: 042
  5. ETOPOSIDE [Suspect]
     Indication: LEUKAEMIA
     Dosage: 1DF:100-150 MG/SQ.M FOR 6 DOSES
     Route: 042
  6. COTRIM [Concomitant]
     Route: 048
  7. ACYCLOVIR [Concomitant]
     Route: 042

REACTIONS (2)
  - JAUNDICE [None]
  - LUNG INFECTION PSEUDOMONAL [None]
